FAERS Safety Report 4587877-4 (Version None)
Quarter: 2005Q1

REPORT INFORMATION
  Report Type: 
  Country: None (occurrence: None)
  Receive Date: 20050125
  Receipt Date: 20040831
  Transmission Date: 20050727
  Serious: No
  Sender: FDA-Public Use
  Company Number: USA040977076

PATIENT
  Age: 30 Year
  Sex: Female

DRUGS (1)
  1. FORTEO [Suspect]
     Indication: OSTEOGENESIS IMPERFECTA

REACTIONS (3)
  - BONE PAIN [None]
  - MYALGIA [None]
  - PAIN IN EXTREMITY [None]
